FAERS Safety Report 7315295-4 (Version None)
Quarter: 2011Q1

REPORT INFORMATION
  Report Type: 
  Country: None (occurrence: None)
  Receive Date: 20110225
  Receipt Date: 20110214
  Transmission Date: 20110831
  Serious: Yes (Other)
  Sender: FDA-Public Use
  Company Number: PHHY2010JP39609

PATIENT
  Sex: Male

DRUGS (10)
  1. EXJADE [Suspect]
     Dosage: 500 MG, DAILY
     Route: 048
     Dates: start: 20090316
  2. EXJADE [Suspect]
     Indication: LEUKAEMIA
     Dosage: 1000 MG, DAILY
     Route: 048
     Dates: start: 20081027, end: 20090315
  3. GLAKAY [Concomitant]
     Indication: IRON OVERLOAD
     Dosage: 45 MG, UNK
     Route: 048
     Dates: start: 20071016
  4. MUCOSTA [Concomitant]
     Dosage: 300 MG, UNK
     Route: 048
     Dates: start: 20080514
  5. GASTER D [Concomitant]
     Dosage: UNK
  6. RED BLOOD CELLS, CONCENTRATED [Concomitant]
     Dosage: 2 UNITS EVERY 2-3 WEEKS
  7. ALFAROL [Concomitant]
     Dosage: 100 UG, UNK
     Route: 048
     Dates: start: 20071016
  8. PREDONINE [Concomitant]
     Indication: IRON OVERLOAD
     Dosage: UNK
     Route: 048
     Dates: start: 20080514
  9. LENDORMIN [Concomitant]
     Dosage: 0.25 MG, UNK
     Route: 048
     Dates: start: 20081020
  10. BLOOD TRANSFUSION, AUXILIARY PRODUCTS [Concomitant]
     Dosage: UNK

REACTIONS (4)
  - VIRAL INFECTION [None]
  - RENAL IMPAIRMENT [None]
  - NEOPLASM MALIGNANT [None]
  - HEPATIC FUNCTION ABNORMAL [None]
